FAERS Safety Report 6671025-0 (Version None)
Quarter: 2010Q2

REPORT INFORMATION
  Report Type: 
  Country: None (occurrence: None)
  Receive Date: 20100407
  Receipt Date: 20100401
  Transmission Date: 20101027
  Serious: Yes (Hospitalization, Other)
  Sender: FDA-Public Use
  Company Number: PHHY2010BR20152

PATIENT
  Sex: Female

DRUGS (1)
  1. EXELON [Suspect]
     Indication: PARKINSON'S DISEASE
     Dosage: 4.6 MG, QD
     Route: 062
     Dates: start: 20070101

REACTIONS (7)
  - COLOSTOMY [None]
  - DYSURIA [None]
  - GASTROINTESTINAL INFECTION [None]
  - LUNG INFECTION [None]
  - NOSOCOMIAL INFECTION [None]
  - TRACHEOSTOMY [None]
  - URINARY TRACT INFECTION [None]
